FAERS Safety Report 17922294 (Version 2)
Quarter: 2020Q2

REPORT INFORMATION
  Report Type: Spontaneous
  Country: US (occurrence: US)
  Receive Date: 20200622
  Receipt Date: 20200626
  Transmission Date: 20200714
  Serious: No
  Sender: FDA-Public Use
  Company Number: US-PFIZER INC-2020181235

PATIENT
  Age: 51 Year
  Sex: Male

DRUGS (1)
  1. LYRICA [Suspect]
     Active Substance: PREGABALIN
     Dosage: 150 MG, 2X/DAY

REACTIONS (6)
  - Restless legs syndrome [Unknown]
  - Therapeutic product effect incomplete [Unknown]
  - Burning sensation [Unknown]
  - Intentional product use issue [Unknown]
  - Pain [Unknown]
  - Pain in extremity [Unknown]
